FAERS Safety Report 9294770 (Version 1)
Quarter: 2013Q2

REPORT INFORMATION
  Report Type: Spontaneous
  Country: US (occurrence: US)
  Receive Date: 20130517
  Receipt Date: 20130517
  Transmission Date: 20140414
  Serious: No
  Sender: FDA-Public Use
  Company Number: US-PFIZER INC-2013150599

PATIENT
  Age: 77 Year
  Sex: Male
  Weight: 58.96 kg

DRUGS (1)
  1. SUTENT [Suspect]
     Dosage: 50 MG, 1X/DAY, 4 WEEKS ON/2 WEEKS OFF
     Route: 048
     Dates: start: 20130406

REACTIONS (3)
  - Dizziness [Unknown]
  - Mood altered [Unknown]
  - Oedema peripheral [Unknown]
